FAERS Safety Report 11411920 (Version 1)
Quarter: 2015Q3

REPORT INFORMATION
  Report Type: Spontaneous
  Country: US (occurrence: US)
  Receive Date: 20150821
  Receipt Date: 20150821
  Transmission Date: 20151125
  Serious: No
  Sender: FDA-Public Use
  Company Number: US-ELI_LILLY_AND_COMPANY-US201110001616

PATIENT
  Sex: Female

DRUGS (2)
  1. HUMULIN R [Suspect]
     Active Substance: INSULIN HUMAN
     Dosage: UNK
  2. HUMULIN R [Suspect]
     Active Substance: INSULIN HUMAN

REACTIONS (3)
  - Drug dispensing error [Unknown]
  - Wrong drug administered [Unknown]
  - Blood glucose increased [Unknown]
